FAERS Safety Report 4512153-5 (Version None)
Quarter: 2004Q4

REPORT INFORMATION
  Report Type: 
  Country: None (occurrence: None)
  Receive Date: 20041129
  Receipt Date: 20040811
  Transmission Date: 20050328
  Serious: Yes (Hospitalization)
  Sender: FDA-Public Use
  Company Number: US-GLAXOSMITHKLINE-A0521833A

PATIENT
  Age: 59 Year
  Sex: Female

DRUGS (11)
  1. DIGOXIN [Suspect]
     Indication: DRUG USE FOR UNKNOWN INDICATION
     Dosage: .25MG PER DAY
     Route: 048
  2. COUMADIN [Concomitant]
  3. AMIODARONE HCL [Concomitant]
  4. LOPRESSOR [Concomitant]
  5. LASIX [Concomitant]
  6. VALIUM [Concomitant]
  7. CELEBREX [Concomitant]
  8. ALLEGRA [Concomitant]
  9. VICODIN [Concomitant]
  10. FLOVENT [Concomitant]
  11. PROVENTIL [Concomitant]

REACTIONS (3)
  - CARDIOACTIVE DRUG LEVEL INCREASED [None]
  - GASTROINTESTINAL DISORDER [None]
  - THERAPEUTIC AGENT TOXICITY [None]
